FAERS Safety Report 11809960 (Version 2)
Quarter: 2016Q1

REPORT INFORMATION
  Report Type: Spontaneous
  Country: FR (occurrence: FR)
  Receive Date: 20151208
  Receipt Date: 20160205
  Transmission Date: 20160525
  Serious: Yes (Other)
  Sender: FDA-Public Use
  Company Number: PHHY2015FR158689

PATIENT
  Age: 63 Year
  Sex: Male
  Weight: 59 kg

DRUGS (7)
  1. ZYKADIA [Interacting]
     Active Substance: CERITINIB
     Dosage: 150 MG, QD
     Route: 065
  2. TEGRETOL [Suspect]
     Active Substance: CARBAMAZEPINE
     Indication: EPILEPSY
     Dosage: 1000 MG (400 MG (MORNING + 600 MG (EVENING)), QD
     Route: 065
     Dates: start: 201410
  3. ZYKADIA [Interacting]
     Active Substance: CERITINIB
     Dosage: 150 MG (1.75 DF), QD
     Route: 048
  4. ZYKADIA [Interacting]
     Active Substance: CERITINIB
     Dosage: 300 MG, QD
     Route: 065
  5. TEGRETOL [Suspect]
     Active Substance: CARBAMAZEPINE
     Dosage: 400 MG, BID
     Route: 065
  6. ZONEGRAN [Interacting]
     Active Substance: ZONISAMIDE
     Indication: EPILEPSY
     Dosage: UNK
     Route: 065
     Dates: start: 20150519
  7. ZYKADIA [Interacting]
     Active Substance: CERITINIB
     Indication: NON-SMALL CELL LUNG CANCER
     Dosage: 750 MG, QD
     Route: 065
     Dates: start: 20150908

REACTIONS (11)
  - Diarrhoea [Recovered/Resolved]
  - Gait disturbance [Recovering/Resolving]
  - Complex regional pain syndrome [Unknown]
  - Gait disturbance [Recovered/Resolved]
  - Asthenia [Recovered/Resolved]
  - Non-small cell lung cancer [Unknown]
  - Malignant neoplasm progression [Unknown]
  - Somnolence [Recovering/Resolving]
  - Asthenia [Recovering/Resolving]
  - Abdominal pain [Recovered/Resolved]
  - Drug interaction [Unknown]

NARRATIVE: CASE EVENT DATE: 20150910
